FAERS Safety Report 16576535 (Version 1)
Quarter: 2019Q3

REPORT INFORMATION
  Report Type: Other
  Country: US (occurrence: US)
  Receive Date: 20190716
  Receipt Date: 20190716
  Transmission Date: 20191004
  Serious: No
  Sender: FDA-Public Use
  Company Number: US-SWEDISH ORPHAN BIOVITRUM-2019US0071

PATIENT
  Sex: Female

DRUGS (3)
  1. TYLACTIN RTD 15 [Concomitant]
  2. PHENYLALANINE [Concomitant]
     Active Substance: PHENYLALANINE
  3. ORFADIN [Suspect]
     Active Substance: NITISINONE
     Indication: TYROSINAEMIA
     Route: 048
     Dates: start: 20140418

REACTIONS (2)
  - Respiratory disorder [Not Recovered/Not Resolved]
  - Ear congestion [Not Recovered/Not Resolved]
